FAERS Safety Report 11014000 (Version 2)
Quarter: 2015Q2

REPORT INFORMATION
  Report Type: Spontaneous
  Country: US (occurrence: US)
  Receive Date: 20150412
  Receipt Date: 20150525
  Transmission Date: 20150821
  Serious: No
  Sender: FDA-Public Use
  Company Number: US-JNJFOC-20140909745

PATIENT
  Sex: Female
  Weight: 58.97 kg

DRUGS (15)
  1. TRAMADOL [Concomitant]
     Active Substance: TRAMADOL
     Indication: FIBROMYALGIA
     Dosage: 50,000
     Route: 048
     Dates: start: 1992
  2. VITAMIN D [Concomitant]
     Active Substance: CHOLECALCIFEROL
     Indication: INTRINSIC FACTOR DEFICIENCY
     Route: 058
  3. OXCARBAZEPINE. [Concomitant]
     Active Substance: OXCARBAZEPINE
     Indication: MIGRAINE
     Dosage: 50,000
     Route: 048
     Dates: start: 2002
  4. SYNTHROID [Concomitant]
     Active Substance: LEVOTHYROXINE SODIUM
     Indication: HYPOTHYROIDISM
     Dosage: 50,000
     Route: 048
     Dates: start: 1992
  5. EXCEDRIN (ACETAMINOPHEN/CAFFEINE) [Concomitant]
     Indication: MIGRAINE
     Route: 048
  6. LIALDA [Concomitant]
     Active Substance: MESALAMINE
     Indication: COLITIS ULCERATIVE
     Route: 048
     Dates: start: 2008
  7. CYTOMEL [Concomitant]
     Active Substance: LIOTHYRONINE SODIUM
     Indication: HYPOTHYROIDISM
     Dosage: 50,000
     Route: 048
     Dates: start: 1994
  8. BENADRYL [Concomitant]
     Active Substance: DIPHENHYDRAMINE HYDROCHLORIDE
     Indication: MULTIPLE ALLERGIES
     Dosage: 50,000
     Route: 048
     Dates: start: 1992
  9. ELMIRON [Suspect]
     Active Substance: PENTOSAN POLYSULFATE SODIUM
     Indication: CYSTITIS INTERSTITIAL
     Route: 048
     Dates: start: 2007, end: 20140828
  10. VITAMIN D [Concomitant]
     Active Substance: CHOLECALCIFEROL
     Indication: VITAMIN D DEFICIENCY
     Dosage: 50,000
     Route: 048
     Dates: start: 201408
  11. VITAMIN D [Concomitant]
     Active Substance: CHOLECALCIFEROL
     Indication: VITAMIN D DEFICIENCY
     Dosage: 50,000
     Route: 048
     Dates: start: 2009
  12. BENADRYL [Concomitant]
     Active Substance: DIPHENHYDRAMINE HYDROCHLORIDE
     Indication: VOMITING
     Dosage: 50,000
     Route: 048
     Dates: start: 1992
  13. FOLBIC [Concomitant]
     Active Substance: CYANOCOBALAMIN\FOLIC ACID\PYRIDOXINE
     Indication: INTRINSIC FACTOR DEFICIENCY
     Dosage: 50,000
     Route: 048
     Dates: start: 2000
  14. BENADRYL [Concomitant]
     Active Substance: DIPHENHYDRAMINE HYDROCHLORIDE
     Indication: NAUSEA
     Dosage: 50,000
     Route: 048
     Dates: start: 1992
  15. HUMIRA [Concomitant]
     Active Substance: ADALIMUMAB
     Indication: COLITIS ULCERATIVE
     Route: 058
     Dates: start: 2010

REACTIONS (4)
  - Impaired gastric emptying [Unknown]
  - Drug dose omission [Not Recovered/Not Resolved]
  - Micturition disorder [Not Recovered/Not Resolved]
  - Weight decreased [Recovering/Resolving]

NARRATIVE: CASE EVENT DATE: 2014
